FAERS Safety Report 9317284 (Version 2)
Quarter: 2013Q4

REPORT INFORMATION
  Report Type: Report from Study
  Country: CA (occurrence: CA)
  Receive Date: 20130530
  Receipt Date: 20131107
  Transmission Date: 20140711
  Serious: Yes (Other)
  Sender: FDA-Public Use
  Company Number: CA-JNJFOC-20130112024

PATIENT
  Age: 38 Year
  Sex: Female
  Weight: 99.5 kg

DRUGS (10)
  1. REMICADE [Suspect]
     Indication: CROHN^S DISEASE
     Route: 042
     Dates: start: 20081125
  2. REMICADE [Suspect]
     Indication: CROHN^S DISEASE
     Route: 042
     Dates: start: 20130916
  3. REMICADE [Suspect]
     Indication: CROHN^S DISEASE
     Route: 042
     Dates: start: 20130116
  4. REMICADE [Suspect]
     Indication: CROHN^S DISEASE
     Route: 042
     Dates: start: 201304
  5. BENADRYL [Concomitant]
     Indication: PREMEDICATION
     Route: 048
     Dates: start: 20130916
  6. TYLENOL [Concomitant]
     Indication: PREMEDICATION
     Route: 048
     Dates: start: 20130916
  7. HYDROCORTISONE [Concomitant]
     Indication: PREMEDICATION
     Route: 042
     Dates: start: 20130916
  8. COVERSYL [Concomitant]
     Route: 065
  9. IMURAN [Concomitant]
     Indication: CROHN^S DISEASE
     Route: 065
     Dates: start: 20121021
  10. PULMICORT [Concomitant]
     Route: 065

REACTIONS (10)
  - Infusion related reaction [Recovered/Resolved]
  - Hypertension [Recovered/Resolved]
  - Diarrhoea [Recovered/Resolved]
  - Chills [Recovered/Resolved]
  - Nausea [Recovered/Resolved]
  - Dizziness [Recovered/Resolved]
  - Influenza like illness [Recovered/Resolved]
  - Headache [Recovered/Resolved]
  - Respiratory tract congestion [Recovered/Resolved]
  - Flushing [Recovered/Resolved]
